FAERS Safety Report 5486669-1 (Version None)
Quarter: 2007Q3

REPORT INFORMATION
  Report Type: 
  Country: None (occurrence: None)
  Receive Date: 20070925
  Receipt Date: 20070615
  Transmission Date: 20080115
  Serious: No
  Sender: FDA-Public Use
  Company Number: 2007US001221

PATIENT
  Sex: Female

DRUGS (1)
  1. VESICARE [Suspect]
     Indication: ENURESIS
     Dosage: 5 MG, ORAL
     Route: 048
     Dates: start: 20070425

REACTIONS (2)
  - DRUG INEFFECTIVE FOR UNAPPROVED INDICATION [None]
  - PRURITUS [None]
